FAERS Safety Report 21421313 (Version 1)
Quarter: 2022Q4

REPORT INFORMATION
  Report Type: Spontaneous
  Country: US (occurrence: US)
  Receive Date: 20221007
  Receipt Date: 20221007
  Transmission Date: 20230113
  Serious: Yes (Hospitalization, Other)
  Sender: FDA-Public Use
  Company Number: US-SA-2022SA406559

PATIENT
  Sex: Male

DRUGS (4)
  1. NICOTINE [Suspect]
     Active Substance: NICOTINE
     Dosage: UNK
  2. MYCOPHENOLATE MOFETIL [Concomitant]
     Active Substance: MYCOPHENOLATE MOFETIL
     Dosage: 1500 MG, QD
  3. DOXYCYCLINE [Concomitant]
     Active Substance: DOXYCYCLINE
     Dosage: 100 MG, BID
  4. NIACINAMIDE [Concomitant]
     Active Substance: NIACINAMIDE
     Dosage: 500 MG, BID

REACTIONS (9)
  - Generalised bullous fixed drug eruption [Recovering/Resolving]
  - Mucosa vesicle [Recovering/Resolving]
  - Tongue ulceration [Recovering/Resolving]
  - Genital ulceration [Recovering/Resolving]
  - Skin ulcer [Recovering/Resolving]
  - Dermatitis [Recovering/Resolving]
  - Oral pain [Recovering/Resolving]
  - Skin erosion [Recovering/Resolving]
  - Skin plaque [Recovering/Resolving]
